FAERS Safety Report 8447137-8 (Version None)
Quarter: 2012Q2

REPORT INFORMATION
  Report Type: 
  Country: None (occurrence: None)
  Receive Date: 20120619
  Receipt Date: 20120613
  Transmission Date: 20120825
  Serious: No
  Sender: FDA-Public Use
  Company Number: US-PFIZER INC-2012142929

PATIENT
  Sex: Female
  Weight: 65 kg

DRUGS (4)
  1. ATENOLOL [Concomitant]
     Dosage: UNK, 1X/DAY
     Route: 048
  2. ARTHROTEC [Suspect]
     Dosage: 75 MG, 2X/DAY
     Route: 048
  3. ARTHROTEC [Suspect]
     Indication: ARTHRITIS
     Dosage: 50 MG, 2X/DAY
     Route: 048
  4. WELLBUTRIN [Concomitant]
     Dosage: UNK, 1X/DAY
     Route: 048

REACTIONS (1)
  - DRUG INEFFECTIVE [None]
